FAERS Safety Report 6337570-2 (Version None)
Quarter: 2009Q3

REPORT INFORMATION
  Report Type: 
  Country: None (occurrence: None)
  Receive Date: 20090902
  Receipt Date: 20090821
  Transmission Date: 20100115
  Serious: Yes (Disabling, Other)
  Sender: FDA-Public Use
  Company Number: DE-ELI_LILLY_AND_COMPANY-DE200908004879

PATIENT
  Age: 43 Year
  Sex: Female
  Weight: 60 kg

DRUGS (4)
  1. ZYPREXA [Suspect]
     Indication: DELUSIONAL DISORDER, PERSECUTORY TYPE
     Dosage: 10 MG, UNK
     Route: 048
     Dates: start: 20090512, end: 20090716
  2. HALOPERIDOL [Concomitant]
     Dosage: 15 MG, UNK
     Route: 048
     Dates: start: 20090503, end: 20090522
  3. QUETIAPINE [Concomitant]
     Dosage: 50 MG, UNK
     Route: 048
     Dates: start: 20090430, end: 20090511
  4. ZOPICLONE [Concomitant]

REACTIONS (1)
  - PULMONARY EMBOLISM [None]
